FAERS Safety Report 18943681 (Version 2)
Quarter: 2024Q3

REPORT INFORMATION
  Report Type: Spontaneous
  Country: ES (occurrence: ES)
  Receive Date: 20210226
  Receipt Date: 20240828
  Transmission Date: 20241016
  Serious: Yes (Other)
  Sender: AUROBINDO
  Company Number: ES-ADIENNEP-2021AD000088

PATIENT
  Age: 2 Year
  Sex: Male

DRUGS (5)
  1. FLUDARABINE [Suspect]
     Active Substance: FLUDARABINE PHOSPHATE
     Indication: Allogenic stem cell transplantation
     Dosage: 150 MILLIGRAM/SQ. METER
     Route: 065
  2. MELPHALAN [Suspect]
     Active Substance: MELPHALAN
     Indication: Allogenic stem cell transplantation
     Dosage: 140 MILLIGRAM/SQ. METER
     Route: 065
  3. THIOTEPA [Suspect]
     Active Substance: THIOTEPA
     Indication: Allogenic stem cell transplantation
     Dosage: 10 MILLIGRAM/KILOGRAM
     Route: 065
  4. GRANULOCYTE COLONY-STIMULATING FACTOR NOS [Concomitant]
     Active Substance: GRANULOCYTE COLONY-STIMULATING FACTOR NOS
     Indication: Prophylaxis against graft versus host disease
     Dosage: 5 MICROGRAM/KILOGRAM
     Route: 065
  5. MYCOPHENOLATE MOFETIL [Concomitant]
     Active Substance: MYCOPHENOLATE MOFETIL
     Indication: Prophylaxis against graft versus host disease
     Dosage: 15 MILLIGRAM/KILOGRAM
     Route: 065

REACTIONS (1)
  - Haemophagocytic lymphohistiocytosis [Recovered/Resolved]
